FAERS Safety Report 10768762 (Version 1)
Quarter: 2015Q1

REPORT INFORMATION
  Report Type: Spontaneous
  Country: US (occurrence: None)
  Receive Date: 20150204
  Receipt Date: 20150204
  Transmission Date: 20150721
  Serious: Yes (Death)
  Sender: FDA-Public Use
  Company Number: 2015EDG00004

PATIENT
  Age: 44 Year
  Sex: Male

DRUGS (3)
  1. HYDROXYZINE  (HYDROXYZINE) [Suspect]
     Active Substance: HYDROXYZINE HYDROCHLORIDE
  2. ALCOHOL (ETHANOL) [Suspect]
     Active Substance: ALCOHOL
  3. FLUOXETINE (FLUOXETINE) [Suspect]
     Active Substance: FLUOXETINE HYDROCHLORIDE

REACTIONS (7)
  - Poisoning [None]
  - Accidental death [None]
  - Hepatic steatosis [None]
  - Alcohol abuse [None]
  - Cirrhosis alcoholic [None]
  - Intentional overdose [None]
  - Cardiomegaly [None]
